FAERS Safety Report 9958609 (Version 1)
Quarter: 2014Q1

REPORT INFORMATION
  Report Type: Report from Study
  Country: US (occurrence: US)
  Receive Date: 20140305
  Receipt Date: 20140305
  Transmission Date: 20141002
  Serious: Yes (Other)
  Sender: FDA-Public Use
  Company Number: US-ROCHE-1353353

PATIENT
  Sex: Female

DRUGS (7)
  1. AVASTIN [Suspect]
     Indication: RECTAL CANCER
     Dosage: BEVACIZUMAB GIVEN ON: 28/JAN/2013, 11/FEB/2013, 25/FEB/2013, 11/MAR/2013, 25/MAR/2013, 08/APR/2013 A
     Route: 042
  2. XELODA [Suspect]
     Indication: PRODUCT USED FOR UNKNOWN INDICATION
     Route: 065
  3. DEXAMETHASONE [Concomitant]
     Route: 065
  4. ONDANSETRON [Concomitant]
     Route: 042
  5. OXALIPLATIN [Concomitant]
     Route: 042
  6. AMOXICILLIN [Concomitant]
  7. HEPARIN ^ROCHE^ [Concomitant]
     Dosage: 500 UNITS
     Route: 065

REACTIONS (10)
  - Proteinuria [Unknown]
  - Urinary tract infection [Recovering/Resolving]
  - Diarrhoea [Not Recovered/Not Resolved]
  - Protein urine [Unknown]
  - White blood cells urine [Unknown]
  - Blood urine present [Unknown]
  - Dysuria [Unknown]
  - Musculoskeletal pain [Unknown]
  - Fatigue [Unknown]
  - Pollakiuria [Unknown]
